FAERS Safety Report 19670806 (Version 1)
Quarter: 2021Q3

REPORT INFORMATION
  Report Type: Other
  Country: FR (occurrence: FR)
  Receive Date: 20210806
  Receipt Date: 20210806
  Transmission Date: 20211014
  Serious: Yes (Death)
  Sender: FDA-Public Use
  Company Number: FR-ROCHE-2883492

PATIENT
  Age: 52 Year
  Sex: Female

DRUGS (1)
  1. ALECTINIB. [Suspect]
     Active Substance: ALECTINIB
     Indication: LUNG ADENOCARCINOMA
     Route: 065

REACTIONS (5)
  - Fistula [Fatal]
  - Hypovolaemic shock [Fatal]
  - Cardiac perforation [Fatal]
  - Photosensitivity reaction [Fatal]
  - Oesophagitis [Fatal]
